FAERS Safety Report 14067191 (Version 1)
Quarter: 2017Q4

REPORT INFORMATION
  Report Type: Spontaneous
  Country: US (occurrence: None)
  Receive Date: 20171009
  Receipt Date: 20171009
  Transmission Date: 20180321
  Serious: Yes (Hospitalization)
  Sender: FDA-Public Use
  Company Number: None

PATIENT
  Age: 67 Year
  Sex: Male
  Weight: 75.9 kg

DRUGS (22)
  1. MELATONIN [Concomitant]
     Active Substance: MELATONIN
  2. ZEPATIER [Suspect]
     Active Substance: ELBASVIR\GRAZOPREVIR
     Indication: HEPATITIS C
     Route: 048
     Dates: start: 20170417, end: 20170721
  3. TYLENOL [Concomitant]
     Active Substance: ACETAMINOPHEN
  4. COLACE [Concomitant]
     Active Substance: DOCUSATE SODIUM
  5. OMEGA 3 FISH OIL [Concomitant]
     Active Substance: FISH OIL\OMEGA-3 FATTY ACIDS
  6. VITAMIN C [Concomitant]
     Active Substance: ASCORBIC ACID
  7. MAGNESIUM [Concomitant]
     Active Substance: MAGNESIUM
  8. SENOKOT [Concomitant]
     Active Substance: SENNOSIDES
  9. KENALOG [Concomitant]
     Active Substance: TRIAMCINOLONE ACETONIDE
  10. DULCOLAX NOS [Concomitant]
     Active Substance: BISACODYL OR DOCUSATE SODIUM
  11. LASIX [Concomitant]
     Active Substance: FUROSEMIDE
  12. COLLAGENASE [Concomitant]
     Active Substance: COLLAGENASE CLOSTRIDIUM HISTOLYTICUM
  13. BREVOXYL [Concomitant]
     Active Substance: BENZOYL PEROXIDE
  14. CLARITIN [Concomitant]
     Active Substance: LORATADINE
  15. MIRALAX [Concomitant]
     Active Substance: POLYETHYLENE GLYCOL 3350
  16. ZINCATE [Concomitant]
  17. AMITIZA [Concomitant]
     Active Substance: LUBIPROSTONE
  18. TAMSULOSIN [Concomitant]
     Active Substance: TAMSULOSIN
  19. LOVENOX [Concomitant]
     Active Substance: ENOXAPARIN SODIUM
  20. NEURONTIN [Concomitant]
     Active Substance: GABAPENTIN
  21. BACLOFEN. [Concomitant]
     Active Substance: BACLOFEN
  22. LIORESAL [Concomitant]
     Active Substance: BACLOFEN

REACTIONS (2)
  - Arteriovenous fistula [None]
  - Muscular weakness [None]

NARRATIVE: CASE EVENT DATE: 20170515
